FAERS Safety Report 9423763 (Version 1)
Quarter: 2013Q3

REPORT INFORMATION
  Report Type: Report from Study
  Country: BR (occurrence: BR)
  Receive Date: 20130728
  Receipt Date: 20130728
  Transmission Date: 20140515
  Serious: Yes (Other)
  Sender: FDA-Public Use
  Company Number: PHHY2013BR079974

PATIENT
  Sex: Female
  Weight: 51 kg

DRUGS (1)
  1. DIOVAN AMLO FIX [Suspect]
     Indication: HYPERTENSION
     Dosage: 1 DF (160/5 MG), DAILY
     Route: 048

REACTIONS (6)
  - Blood triglycerides increased [Recovering/Resolving]
  - Memory impairment [Not Recovered/Not Resolved]
  - Blood cholesterol increased [Recovering/Resolving]
  - Sleep disorder [Recovering/Resolving]
  - Formication [Recovering/Resolving]
  - Tinnitus [Not Recovered/Not Resolved]
